FAERS Safety Report 15237352 (Version 2)
Quarter: 2019Q1

REPORT INFORMATION
  Report Type: Report from Study
  Country: GB (occurrence: GB)
  Receive Date: 20180803
  Receipt Date: 20190207
  Transmission Date: 20190417
  Serious: Yes (Hospitalization)
  Sender: FDA-Public Use
  Company Number: GB-ROCHE-2153543

PATIENT
  Age: 46 Year
  Sex: Male
  Weight: 83 kg

DRUGS (15)
  1. TAMIFLU [Concomitant]
     Active Substance: OSELTAMIVIR PHOSPHATE
     Indication: INFLUENZA
     Dosage: BY MOUTH
     Route: 048
     Dates: start: 20180205
  2. HYDROCORTISONE. [Concomitant]
     Active Substance: HYDROCORTISONE
     Indication: ADRENAL INSUFFICIENCY
     Dosage: BY MOUTH
     Route: 048
     Dates: start: 20180529
  3. AMOXICILLIN. [Concomitant]
     Active Substance: AMOXICILLIN
     Indication: INFECTION
     Dosage: BY MOUTH
     Route: 048
     Dates: start: 20180203
  4. BETNOVATE [Concomitant]
     Active Substance: BETAMETHASONE
     Indication: FOLLICULITIS
     Route: 065
     Dates: start: 20180417
  5. EPIDUO [Concomitant]
     Active Substance: ADAPALENE\BENZOYL PEROXIDE
     Indication: FOLLICULITIS
     Route: 065
     Dates: start: 20180417
  6. ENTONOX [Concomitant]
     Active Substance: NITROUS OXIDE\OXYGEN
     Indication: ABDOMINAL PAIN
     Route: 048
     Dates: start: 20180706, end: 20180706
  7. VEMURAFENIB. [Suspect]
     Active Substance: VEMURAFENIB
     Indication: MALIGNANT MELANOMA
     Dosage: TOTAL NUMBER OF TABLETS OF LAST VEMURAFENIB ADMINISTERED PRIOR TO AE ONSET WAS 2 TABLETS.?DATE OF MO
     Route: 048
     Dates: start: 20171219
  8. AMLODIPINE [Concomitant]
     Active Substance: AMLODIPINE BESYLATE
     Dosage: BY MOUTH
     Route: 048
     Dates: start: 20180501
  9. AMOXICILLIN. [Concomitant]
     Active Substance: AMOXICILLIN
     Indication: PRODUCTIVE COUGH
     Dosage: BY MOUTH
     Route: 048
     Dates: start: 20180403
  10. FUCIDIN [Concomitant]
     Active Substance: FUSIDATE SODIUM
     Route: 061
     Dates: start: 20180403
  11. AMLODIPINE [Concomitant]
     Active Substance: AMLODIPINE BESYLATE
     Indication: HYPERTENSION
     Dosage: BY MOUTH
     Route: 048
     Dates: start: 20180108
  12. BLINDED ATEZOLIZUMAB [Suspect]
     Active Substance: ATEZOLIZUMAB
     Indication: MALIGNANT MELANOMA
     Dosage: DATE OF MOST RECENT DOSE OF BLINDED ATEZOLIZUMAB PRIOR TO AE ONSET 26/JUN/2018
     Route: 042
     Dates: start: 20180123
  13. PARACETAMOL [Concomitant]
     Active Substance: ACETAMINOPHEN
     Indication: PAIN
  14. COBIMETINIB. [Suspect]
     Active Substance: COBIMETINIB
     Indication: MALIGNANT MELANOMA
     Dosage: DATE OF MOST RECENT DOSE OF COBIMETINIB (40 MG) PRIOR TO AE ONSET  27/JUN/2018
     Route: 048
     Dates: start: 20171219
  15. PARACETAMOL [Concomitant]
     Active Substance: ACETAMINOPHEN
     Indication: PYREXIA
     Dosage: BY MOUTH
     Route: 048
     Dates: start: 20180203

REACTIONS (1)
  - Upper respiratory tract infection [Recovered/Resolved]

NARRATIVE: CASE EVENT DATE: 20180707
